FAERS Safety Report 18679128 (Version 2)
Quarter: 2022Q2

REPORT INFORMATION
  Report Type: Spontaneous
  Country: US (occurrence: None)
  Receive Date: 20201230
  Receipt Date: 20220418
  Transmission Date: 20220721
  Serious: Yes (Life-Threatening, Hospitalization, Other)
  Sender: FDA-Public Use
  Company Number: US-MLMSERVICE-20201215-2628066-1

PATIENT
  Age: 72 Year
  Sex: Female

DRUGS (3)
  1. HEPARIN [Suspect]
     Active Substance: HEPARIN SODIUM
     Indication: Atrial fibrillation
     Dosage: UNKNOWN
     Route: 041
  2. HEPARIN [Suspect]
     Active Substance: HEPARIN SODIUM
     Indication: Anticoagulant therapy
  3. DILTIAZEM [Concomitant]
     Active Substance: DILTIAZEM
     Indication: Atrial fibrillation
     Dosage: UNKNOWN
     Route: 065

REACTIONS (6)
  - Hypotension [Recovered/Resolved]
  - Haemoglobin decreased [Recovering/Resolving]
  - Retroperitoneal haematoma [Recovering/Resolving]
  - Spontaneous haematoma [Recovering/Resolving]
  - Haematoma muscle [Recovering/Resolving]
  - Syncope [Recovered/Resolved]
